FAERS Safety Report 10516022 (Version 2)
Quarter: 2016Q4

REPORT INFORMATION
  Report Type: Report from Study
  Country: FR (occurrence: FR)
  Receive Date: 20141014
  Receipt Date: 20161108
  Transmission Date: 20170206
  Serious: Yes (Other)
  Sender: FDA-Public Use
  Company Number: FR-RANBAXY-2014R1-86400

PATIENT
  Age: 27 Week
  Sex: Male

DRUGS (1)
  1. MIDAZOLAM [Suspect]
     Active Substance: MIDAZOLAM\MIDAZOLAM HYDROCHLORIDE
     Indication: PRODUCT USED FOR UNKNOWN INDICATION
     Dosage: 0.1 MG/KG, SINGLE
     Route: 045

REACTIONS (3)
  - Agitation [Recovered/Resolved]
  - Neonatal hypotension [Recovered/Resolved]
  - Myoclonus [Recovered/Resolved]
